FAERS Safety Report 13375055 (Version 1)
Quarter: 2017Q1

REPORT INFORMATION
  Report Type: Spontaneous
  Country: HR (occurrence: HR)
  Receive Date: 20170327
  Receipt Date: 20170327
  Transmission Date: 20170429
  Serious: Yes (Other)
  Sender: FDA-Public Use
  Company Number: HR-ABBVIE-17P-216-1913750-00

PATIENT
  Age: 39 Year
  Sex: Male

DRUGS (3)
  1. HUMIRA [Suspect]
     Active Substance: ADALIMUMAB
     Indication: HIDRADENITIS
     Dosage: INITIAL DOSE OF 160MG ADMINISTERED BY 2 INJECTIONS OF 40 MG DAILY FOR 2 CONSECUTIVE DAYS.
     Route: 058
     Dates: start: 20160711, end: 20160712
  2. HUMIRA [Suspect]
     Active Substance: ADALIMUMAB
     Dosage: 80MG 2 WK  AFTER 1ST DOSE, ON THE 15TH DAY (ADMIN. AS 2 INJECTIONS OF 40MG IN ONE DAY).
     Route: 058
     Dates: start: 20160725, end: 20160725
  3. HUMIRA [Suspect]
     Active Substance: ADALIMUMAB
     Dosage: ON 29TH DAY TREATMENT CONTINUES WITH A DOSE OF 40 MG EVERY WEEK.
     Route: 058
     Dates: start: 20160808, end: 20160823

REACTIONS (3)
  - Pain in extremity [Recovered/Resolved]
  - Thrombophlebitis [Recovered/Resolved]
  - Oedema peripheral [Recovered/Resolved]

NARRATIVE: CASE EVENT DATE: 20160821
